FAERS Safety Report 6635393-8 (Version None)
Quarter: 2010Q1

REPORT INFORMATION
  Report Type: 
  Country: None (occurrence: None)
  Receive Date: 20100315
  Receipt Date: 20090422
  Transmission Date: 20100710
  Serious: Yes (Hospitalization, Disabling)
  Sender: FDA-Public Use
  Company Number: US-ABBOTT-09P-163-0569860-00

PATIENT
  Sex: Female

DRUGS (7)
  1. DEPAKOTE [Suspect]
     Indication: DRUG USE FOR UNKNOWN INDICATION
  2. PAXIL [Suspect]
     Indication: DEPRESSION
     Route: 048
     Dates: start: 19980101, end: 20000101
  3. LITHIUM CARBONATE [Suspect]
     Indication: DRUG USE FOR UNKNOWN INDICATION
  4. SERZONE [Suspect]
     Indication: DRUG USE FOR UNKNOWN INDICATION
  5. NEURONTIN [Suspect]
     Indication: DRUG USE FOR UNKNOWN INDICATION
  6. ATIVAN [Suspect]
     Indication: DRUG USE FOR UNKNOWN INDICATION
  7. LEVOTHYROXINE SODIUM [Concomitant]
     Indication: DRUG USE FOR UNKNOWN INDICATION

REACTIONS (2)
  - DEPRESSION [None]
  - WEIGHT INCREASED [None]
